FAERS Safety Report 8116291-X (Version None)
Quarter: 2012Q1

REPORT INFORMATION
  Report Type: 
  Country: None (occurrence: None)
  Receive Date: 20120206
  Receipt Date: 20120201
  Transmission Date: 20120608
  Serious: Yes (Hospitalization)
  Sender: FDA-Public Use
  Company Number: US-VERTEX PHARMACEUTICALS INC.-AE-2011-005691

PATIENT
  Sex: Male
  Weight: 93.07 kg

DRUGS (7)
  1. PAXIL [Concomitant]
     Route: 048
  2. INCIVEK [Suspect]
     Indication: HEPATITIS C
     Route: 048
     Dates: start: 20111023, end: 20120111
  3. LEVOTHYROXINE SODIUM [Concomitant]
     Indication: HORMONE REPLACEMENT THERAPY
     Route: 048
  4. RIBAVIRIN [Concomitant]
     Indication: HEPATITIS C
     Route: 048
     Dates: start: 20111023
  5. ZYRTEC [Concomitant]
     Indication: PRURITUS GENERALISED
     Route: 048
  6. PEGASYS [Concomitant]
     Indication: HEPATITIS C
     Route: 058
     Dates: start: 20111023
  7. ZYRTEC [Concomitant]
     Indication: RASH

REACTIONS (8)
  - RASH PRURITIC [None]
  - INJECTION SITE REACTION [None]
  - PYREXIA [None]
  - HAEMORRHOIDAL HAEMORRHAGE [None]
  - RASH ERYTHEMATOUS [None]
  - WEIGHT INCREASED [None]
  - OEDEMA PERIPHERAL [None]
  - LIP SWELLING [None]
